FAERS Safety Report 4369044-2 (Version None)
Quarter: 2004Q2

REPORT INFORMATION
  Report Type: 
  Country: None (occurrence: None)
  Receive Date: 20040525
  Receipt Date: 20040512
  Transmission Date: 20050107
  Serious: Yes (Other)
  Sender: FDA-Public Use
  Company Number: GB-JNJFOC-20040302601

PATIENT
  Age: 12 Year
  Sex: Male
  Weight: 36 kg

DRUGS (8)
  1. CONCERTA [Suspect]
     Indication: ATTENTION DEFICIT/HYPERACTIVITY DISORDER
     Dosage: 72 MG, 1 IN 1 DAY, ORAL
     Route: 048
     Dates: start: 20030120
  2. CEFUROXIME [Concomitant]
  3. ONDANSETRON HCL [Concomitant]
  4. ACETAMINOPHEN [Concomitant]
  5. DICLOFENAC (DICLOFENAC) [Concomitant]
  6. CYCLIZINE (CYCLIZINE) [Concomitant]
  7. CO-CODAMOL (PANADEINE CO) [Concomitant]
  8. CEFUROXINE (CEFUROXIME) UNKNOWN [Concomitant]

REACTIONS (8)
  - ABNORMAL DREAMS [None]
  - ANTICIPATORY ANXIETY [None]
  - HALLUCINATION, VISUAL [None]
  - POST PROCEDURAL COMPLICATION [None]
  - SKIN LACERATION [None]
  - TENDON INJURY [None]
  - THERMAL BURN [None]
  - VASCULAR INJURY [None]
